FAERS Safety Report 15689907 (Version 1)
Quarter: 2018Q4

REPORT INFORMATION
  Report Type: Spontaneous
  Country: US (occurrence: US)
  Receive Date: 20181205
  Receipt Date: 20181205
  Transmission Date: 20190205
  Serious: Yes (Hospitalization)
  Sender: FDA-Public Use
  Company Number: None

PATIENT
  Age: 85 Year
  Sex: Female

DRUGS (8)
  1. TADALAFIL. [Suspect]
     Active Substance: TADALAFIL
     Indication: PULMONARY ARTERIAL HYPERTENSION
     Dosage: ?          OTHER FREQUENCY:AS DIRECTED;?
     Route: 048
  2. ALLEGRA ALRG [Concomitant]
  3. ASPIRIN. [Concomitant]
     Active Substance: ASPIRIN
  4. SINGULAIR [Concomitant]
     Active Substance: MONTELUKAST SODIUM
  5. OPSUMIT [Concomitant]
     Active Substance: MACITENTAN
  6. NEXIUM [Concomitant]
     Active Substance: ESOMEPRAZOLE MAGNESIUM
  7. PREDNISONE. [Concomitant]
     Active Substance: PREDNISONE
  8. MICARDIS [Concomitant]
     Active Substance: TELMISARTAN

REACTIONS (2)
  - Blood iron decreased [None]
  - Blood count abnormal [None]

NARRATIVE: CASE EVENT DATE: 20181101
